FAERS Safety Report 9184737 (Version 1)
Quarter: 2013Q1

REPORT INFORMATION
  Report Type: Spontaneous
  Country: BR (occurrence: BR)
  Receive Date: 20130324
  Receipt Date: 20130324
  Transmission Date: 20140127
  Serious: Yes (Hospitalization, Other)
  Sender: FDA-Public Use
  Company Number: BR-ABBOTT-13P-020-1046694-00

PATIENT
  Sex: Male
  Weight: 85 kg

DRUGS (4)
  1. DEPAKENE [Suspect]
     Indication: EPILEPSY
     Route: 048
  2. DEPAKENE [Suspect]
     Route: 048
  3. DEPAKENE [Suspect]
     Dosage: 2 TABLETS PER DAY
     Route: 048
  4. DEPAKENE [Suspect]
     Dosage: 250MG + 500MG, IN THE MORNING/ AT NIGHT
     Route: 048

REACTIONS (8)
  - Meningitis [Recovered/Resolved]
  - Convulsion [Recovered/Resolved]
  - Hepatic steatosis [Not Recovered/Not Resolved]
  - Drug withdrawal convulsions [Unknown]
  - Bradyphrenia [Unknown]
  - Therapy cessation [Unknown]
  - Ocular icterus [Unknown]
  - Memory impairment [Unknown]
